FAERS Safety Report 9138722 (Version 1)
Quarter: 2013Q1

REPORT INFORMATION
  Report Type: Not Available
  Country: US (occurrence: US)
  Receive Date: 20130305
  Receipt Date: 20130305
  Transmission Date: 20140127
  Serious: Yes (Death)
  Sender: FDA-Public Use
  Company Number: US-ENDO PHARMACEUTICALS INC.-PERC20090150

PATIENT
  Age: 33 Year
  Sex: Male

DRUGS (1)
  1. PERCOCET [Suspect]
     Indication: PAIN

REACTIONS (2)
  - Overdose [None]
  - Drug dependence [None]
